FAERS Safety Report 6600923-9 (Version None)
Quarter: 2010Q1

REPORT INFORMATION
  Report Type: 
  Country: None (occurrence: None)
  Receive Date: 20100224
  Receipt Date: 20100224
  Transmission Date: 20100710
  Serious: No
  Sender: FDA-Public Use
  Company Number: None

PATIENT
  Age: 79 Year
  Sex: Female
  Weight: 72.5755 kg

DRUGS (1)
  1. DOXYCYCLINE HYCLATE [Suspect]
     Indication: EYE INFLAMMATION
     Dosage: 1 A DAY 2 WEEKS
     Dates: start: 20091230, end: 20091230

REACTIONS (3)
  - DIZZINESS [None]
  - DYSPHAGIA [None]
  - PALPITATIONS [None]
